FAERS Safety Report 5362307-3 (Version None)
Quarter: 2007Q2

REPORT INFORMATION
  Report Type: 
  Country: None (occurrence: None)
  Receive Date: 20070619
  Receipt Date: 20070612
  Transmission Date: 20071010
  Serious: Yes (Congenital Anomaly)
  Sender: FDA-Public Use
  Company Number: B0472709A

PATIENT
  Age: 1 Day
  Sex: Female
  Weight: 3.1 kg

DRUGS (7)
  1. FLUTIDE DISKUS [Suspect]
     Indication: ASTHMA
     Dosage: 200MCG TWICE PER DAY
  2. SEREVENT [Suspect]
     Indication: ASTHMA
     Dosage: 50MCG TWICE PER DAY
  3. THEO-DUR [Suspect]
     Indication: DRUG USE FOR UNKNOWN INDICATION
     Dosage: 200MG TWICE PER DAY
     Dates: end: 20060801
  4. SOLU-MEDROL [Concomitant]
     Dosage: 500MG PER DAY
     Dates: start: 20070501, end: 20070503
  5. VICCILLIN [Concomitant]
     Dosage: 8G PER DAY
     Dates: start: 20070501, end: 20070507
  6. PREDONINE [Concomitant]
     Dates: start: 20070504, end: 20070511
  7. MAGNESIUM OXIDE [Concomitant]
     Dosage: 1.5G PER DAY
     Dates: start: 20070504, end: 20070511

REACTIONS (2)
  - DRUG EXPOSURE DURING PREGNANCY [None]
  - POLYDACTYLY [None]
